FAERS Safety Report 24717891 (Version 5)
Quarter: 2025Q4

REPORT INFORMATION
  Report Type: Spontaneous
  Country: CA (occurrence: CA)
  Receive Date: 20241210
  Receipt Date: 20251029
  Transmission Date: 20260119
  Serious: Yes (Hospitalization, Other)
  Sender: MYLAN
  Company Number: CA-MYLANLABS-2024M1109495

PATIENT
  Age: 11 Year
  Sex: Male

DRUGS (149)
  1. CELECOXIB [Suspect]
     Active Substance: CELECOXIB
     Indication: Pain management
     Dosage: 100 MILLIGRAM, BID (2 EVERY 1 DAYS)
  2. CELECOXIB [Suspect]
     Active Substance: CELECOXIB
     Indication: Back pain
     Dosage: 100 MILLIGRAM, BID (1 EVERY 12 HOURS)
  3. CELECOXIB [Suspect]
     Active Substance: CELECOXIB
     Dosage: UNK
  4. GABAPENTIN [Suspect]
     Active Substance: GABAPENTIN
     Indication: Pain management
     Dosage: 600 MILLIGRAM, BID (2 EVERY 1 DAY)
  5. GABAPENTIN [Suspect]
     Active Substance: GABAPENTIN
     Indication: Back pain
     Dosage: 600 MILLIGRAM, TID (3 EVERY 1 DAY)
  6. GABAPENTIN [Suspect]
     Active Substance: GABAPENTIN
     Dosage: 300 MILLIGRAM, Q8H (1 EVERY 8 HOURS)
  7. GABAPENTIN [Suspect]
     Active Substance: GABAPENTIN
     Dosage: 600 MILLIGRAM, Q8H (1 EVERY 8 HOURS)
  8. VITAMIN C [Suspect]
     Active Substance: ASCORBIC ACID
     Indication: Product used for unknown indication
     Dosage: 1500 MILLIGRAM, QD (1 EVERY 1 DAY)
  9. VITAMIN C [Suspect]
     Active Substance: ASCORBIC ACID
     Indication: Child abuse
     Dosage: 1500 MILLIGRAM, QD (1 EVERY 1 DAY)
  10. ARIPIPRAZOLE [Suspect]
     Active Substance: ARIPIPRAZOLE
     Indication: Product used for unknown indication
     Dosage: 2 MILLIGRAM, TID (3 EVERY 1 DAY)
  11. ARIPIPRAZOLE [Suspect]
     Active Substance: ARIPIPRAZOLE
     Dosage: 2 MILLIGRAM, Q8H (1 EVERY 8 HOURS)
  12. ARIPIPRAZOLE [Suspect]
     Active Substance: ARIPIPRAZOLE
     Dosage: 2 MILLIGRAM, QD (1 EVERY 1 DAYS)
  13. ARIPIPRAZOLE [Suspect]
     Active Substance: ARIPIPRAZOLE
     Indication: Product used for unknown indication
     Dosage: 2 MILLIGRAM, QD (1 EVERY 1 DAYS)
  14. BACLOFEN [Suspect]
     Active Substance: BACLOFEN
     Indication: Product used for unknown indication
     Dosage: 20 MILLIGRAM, TID (3 EVERY 1 DAY)
  15. BACLOFEN [Suspect]
     Active Substance: BACLOFEN
     Dosage: 20 MILLIGRAM, Q8H (1 EVERY 8 HOURS)
  16. BISACODYL [Suspect]
     Active Substance: BISACODYL
     Indication: Product used for unknown indication
     Dosage: 5 MILLIGRAM, QD (1 EVERY 1 DAYS)
  17. BISACODYL [Suspect]
     Active Substance: BISACODYL
     Dosage: 5 MILLIGRAM, QD (1 EVERY 1 DAYS)
  18. CHOLECALCIFEROL [Suspect]
     Active Substance: CHOLECALCIFEROL
     Indication: Vitamin supplementation
     Dosage: UNK
  19. CHOLECALCIFEROL [Suspect]
     Active Substance: CHOLECALCIFEROL
     Indication: Vitamin supplementation
     Dosage: 2000 INTERNATIONAL UNIT, QD (1 EVERY 1 DAY)
  20. CLOBAZAM [Suspect]
     Active Substance: CLOBAZAM
     Indication: Back pain
     Dosage: 20 MILLIGRAM, BID (2 EVERY 1 DAYS)
  21. CLOBAZAM [Suspect]
     Active Substance: CLOBAZAM
     Dosage: 20 MILLIGRAM, BID (1 EVERY 12 HOURS)
  22. CLONIDINE [Suspect]
     Active Substance: CLONIDINE
     Indication: Product used for unknown indication
     Dosage: 0.05 MILLIGRAM, QD (1 EVERY 1 DAY)
  23. CLONIDINE [Suspect]
     Active Substance: CLONIDINE
     Dosage: 0.1 MILLIGRAM, QD (1 EVERY 1 DAY)
  24. DIMENHYDRINATE [Suspect]
     Active Substance: DIMENHYDRINATE
     Indication: Constipation
     Dosage: 25 MILLIGRAM, QD (1 EVERY 1 DAYS)
  25. DIMENHYDRINATE [Suspect]
     Active Substance: DIMENHYDRINATE
     Dosage: 20 MILLIGRAM, QD (1 EVERY 1 DAYS)
  26. DIMENHYDRINATE [Suspect]
     Active Substance: DIMENHYDRINATE
     Indication: Constipation
     Dosage: 25 MILLIGRAM, QD (1 EVERY 1 DAYS)
  27. DIMENHYDRINATE [Suspect]
     Active Substance: DIMENHYDRINATE
     Indication: Pruritus
     Dosage: 20 MILLIGRAM, QD (1 EVERY 1 DAYS)
  28. DIMENHYDRINATE [Suspect]
     Active Substance: DIMENHYDRINATE
     Dosage: 12.5 MILLIGRAM, QID (4 EVERY 1 DAYS)
  29. DIPHENHYDRAMINE [Suspect]
     Active Substance: DIPHENHYDRAMINE
     Indication: Pruritus
     Dosage: 12.5 MILLIGRAM, QID (4 EVERY 1 DAY)
  30. DIPHENHYDRAMINE [Suspect]
     Active Substance: DIPHENHYDRAMINE
     Dosage: 12.5 MILLIGRAM, Q6H (1 EVERY 6 HOURS)
  31. DOCONEXENT [Suspect]
     Active Substance: DOCONEXENT
     Indication: Product used for unknown indication
     Dosage: UNK
  32. DULCOLAX (BISACODYL) [Suspect]
     Active Substance: BISACODYL
     Indication: Product used for unknown indication
     Dosage: 5 MILLIGRAM, QD (1 EVERY 1 DAYS)
  33. ELIGARD [Suspect]
     Active Substance: LEUPROLIDE ACETATE
     Indication: Precocious puberty
     Dosage: 7.5 MILLIGRAM, MONTHLY (1 EVERY 1 MONTH)
  34. ELIGARD [Suspect]
     Active Substance: LEUPROLIDE ACETATE
     Indication: Precocious puberty
     Dosage: UNK
  35. ELIGARD [Suspect]
     Active Substance: LEUPROLIDE ACETATE
     Indication: Product used for unknown indication
     Dosage: 7.5 MILLIGRAM
  36. ELIGARD [Suspect]
     Active Substance: LEUPROLIDE ACETATE
     Dosage: 7.5 MILLIGRAM
  37. ELIGARD [Suspect]
     Active Substance: LEUPROLIDE ACETATE
     Indication: Precocious puberty
     Dosage: 7.5 MILLIGRAM
  38. ELIGARD [Suspect]
     Active Substance: LEUPROLIDE ACETATE
     Dosage: 7.5 MILLIGRAM
  39. FLUOXETINE [Suspect]
     Active Substance: FLUOXETINE HYDROCHLORIDE
     Indication: Product used for unknown indication
     Dosage: 20 MILLIGRAM, QD (1 EVERY 1 DAYS)
  40. FLUTICASONE [Suspect]
     Active Substance: FLUTICASONE
     Indication: Product used for unknown indication
     Dosage: 250 MICROGRAM, QD (1 EVERY 1 DAY)
  41. FLUTICASONE [Suspect]
     Active Substance: FLUTICASONE
     Dosage: 1 DOSAGE FORM, QD (1 EVERY 1 DAYS)
  42. FLUTICASONE [Suspect]
     Active Substance: FLUTICASONE
     Dosage: 2 DOSAGE FORM, QD (1 EVERY 1 DAYS)
  43. FLUTICASONE [Suspect]
     Active Substance: FLUTICASONE
     Dosage: 250 MICROGRAM, QD (1 EVERY 1 DAY)
  44. FLUTICASONE [Suspect]
     Active Substance: FLUTICASONE
     Dosage: UNK, QD (1 EVERY 1 DAYS)
  45. FLUTICASONE [Suspect]
     Active Substance: FLUTICASONE
     Dosage: UNK, QD (1 EVERY 1 DAYS)
  46. HYDROXYCHLOROQUINE [Suspect]
     Active Substance: HYDROXYCHLOROQUINE
     Indication: Child abuse
     Dosage: 400 MILLIGRAM, QD (1 EVERY 1 DAYS)
  47. KETOROLAC [Suspect]
     Active Substance: KETOROLAC TROMETHAMINE
     Indication: Pain
     Dosage: UNK
  48. KETOROLAC [Suspect]
     Active Substance: KETOROLAC TROMETHAMINE
     Dosage: 20 MILLIGRAM, QID (4 EVERY 1 DAYS)
  49. KETOROLAC [Suspect]
     Active Substance: KETOROLAC TROMETHAMINE
     Dosage: 20 MILLIGRAM, Q6H (1 EVERY 6 HOUR)
  50. ACETAMINOPHEN\METHOCARBAMOL [Suspect]
     Active Substance: ACETAMINOPHEN\METHOCARBAMOL
     Indication: Back pain
     Dosage: 400 MILLIGRAM, BID (2 EVERY 1 DAY)
  51. FISH OIL [Suspect]
     Active Substance: FISH OIL
     Indication: Product used for unknown indication
     Dosage: 200 MILLIGRAM, QD (1 EVERY 1 DAYS)
  52. FLUOXETINE HYDROCHLORIDE [Suspect]
     Active Substance: FLUOXETINE HYDROCHLORIDE
     Indication: Product used for unknown indication
     Dosage: 20 MILLIGRAM, QD (1 EVERY 1 DAYS)
  53. HYDROMORPHONE [Suspect]
     Active Substance: HYDROMORPHONE
     Indication: Pain management
     Dosage: UNK
  54. HYDROMORPHONE [Suspect]
     Active Substance: HYDROMORPHONE
     Indication: Back pain
  55. HYDROMORPHONE HYDROCHLORIDE [Suspect]
     Active Substance: HYDROMORPHONE HYDROCHLORIDE
     Indication: Pain management
     Dosage: 0.5 MILLIGRAM
  56. HYDROMORPHONE HYDROCHLORIDE [Suspect]
     Active Substance: HYDROMORPHONE HYDROCHLORIDE
     Indication: Back pain
     Dosage: UNK
  57. HYDROMORPHONE HYDROCHLORIDE [Suspect]
     Active Substance: HYDROMORPHONE HYDROCHLORIDE
     Indication: Pain management
     Dosage: UNK
  58. HYDROMORPHONE HYDROCHLORIDE [Suspect]
     Active Substance: HYDROMORPHONE HYDROCHLORIDE
     Indication: Back pain
     Dosage: 0.5 MILLIGRAM
  59. LEUPROLIDE [Suspect]
     Active Substance: LEUPROLIDE
     Indication: Product used for unknown indication
     Dosage: 7.5 MILLIGRAM
  60. LEUPROLIDE [Suspect]
     Active Substance: LEUPROLIDE
     Dosage: 7.5 MILLIGRAM, QD (1 EVERY 1 DAYS)
  61. LEUPROLIDE ACETATE [Suspect]
     Active Substance: LEUPROLIDE ACETATE
     Indication: Product used for unknown indication
     Dosage: 7.5 MILLIGRAM, MONTHLY (1 EVERY 1 MONTH)
  62. LEUPROLIDE ACETATE [Suspect]
     Active Substance: LEUPROLIDE ACETATE
     Dosage: 0.25 MILLIGRAM, QD (1 EVERY 1 DAYS)
  63. LORAZEPAM [Suspect]
     Active Substance: LORAZEPAM
     Indication: Seizure
     Dosage: 0.5 MILLIGRAM
  64. LORAZEPAM [Suspect]
     Active Substance: LORAZEPAM
     Indication: Pain management
     Dosage: 2 MILLIGRAM
  65. LORAZEPAM [Suspect]
     Active Substance: LORAZEPAM
     Indication: Muscle spasms
     Dosage: UNK
  66. LORAZEPAM [Suspect]
     Active Substance: LORAZEPAM
     Indication: Back pain
     Dosage: 7.5 MILLIGRAM, MONTHLY (1 EVERY 1 MONTH)
  67. LORAZEPAM [Suspect]
     Active Substance: LORAZEPAM
     Indication: Seizure
     Dosage: 0.5 MILLIGRAM
  68. LORAZEPAM [Suspect]
     Active Substance: LORAZEPAM
     Indication: Pain management
     Dosage: 2 MILLIGRAM
  69. LORAZEPAM [Suspect]
     Active Substance: LORAZEPAM
     Indication: Muscle spasms
     Dosage: 2 MILLIGRAM, QD (1 EVERY 1 DAYS)
  70. LORAZEPAM [Suspect]
     Active Substance: LORAZEPAM
     Indication: Back pain
     Dosage: 0.5 MILLIGRAM, QD (1 EVERY 1 DAY)
  71. LORAZEPAM [Suspect]
     Active Substance: LORAZEPAM
     Dosage: UNK
  72. POLYETHYLENE GLYCOLS [Suspect]
     Active Substance: POLYETHYLENE GLYCOLS
     Indication: Product used for unknown indication
     Dosage: 30 MILLIGRAM, BID (2 EVERY 1 DAY)
  73. POLYETHYLENE GLYCOL 3350 [Suspect]
     Active Substance: POLYETHYLENE GLYCOL 3350
     Indication: Product used for unknown indication
     Dosage: 30 MILLIGRAM, BID (2 EVERY 1 DAY)
  74. POLYETHYLENE GLYCOL 3350\POTASSIUM CHLORIDE\SODIUM BICARBONATE\SODIUM [Suspect]
     Active Substance: POLYETHYLENE GLYCOL 3350\POTASSIUM CHLORIDE\SODIUM BICARBONATE\SODIUM CHLORIDE
     Indication: Product used for unknown indication
     Dosage: 30 MILLIGRAM, BID (2 EVERY 1 DAY)
  75. MELATONIN [Suspect]
     Active Substance: MELATONIN
     Indication: Sleep disorder
     Dosage: 10 MILLIGRAM, QD (1 EVERY 1 DAYS)
  76. MELATONIN [Suspect]
     Active Substance: MELATONIN
     Indication: Sleep deficit
     Dosage: 10 MILLIGRAM
  77. MELATONIN [Suspect]
     Active Substance: MELATONIN
     Indication: Child abuse
  78. METHADONE [Suspect]
     Active Substance: METHADONE HYDROCHLORIDE
     Indication: Sleep disorder
     Dosage: 0.375 MILLIGRAM, QD (1 EVERY 1 DAY)
  79. METHADONE [Suspect]
     Active Substance: METHADONE HYDROCHLORIDE
     Indication: Child abuse
     Dosage: 2 MILLIGRAM, TID (3 EVERY 1 DAY)
  80. METHADONE [Suspect]
     Active Substance: METHADONE HYDROCHLORIDE
     Indication: Back pain
     Dosage: 10 MILLIGRAM, QD (1 EVERY 1 DAYS)
  81. METHADONE [Suspect]
     Active Substance: METHADONE HYDROCHLORIDE
     Dosage: 2 MILLIGRAM, Q8H (1 EVERY 8 HOU)
  82. METHOCARBAMOL [Suspect]
     Active Substance: METHOCARBAMOL
     Indication: Child abuse
     Dosage: UNK, BID (2 EVERY 1 DAYS)
  83. METHOCARBAMOL [Suspect]
     Active Substance: METHOCARBAMOL
     Indication: Back pain
     Dosage: 400 MILLIGRAM, BID (2 EVERY 1 DAY)
  84. METHOCARBAMOL [Suspect]
     Active Substance: METHOCARBAMOL
     Dosage: UNK
  85. METHOCARBAMOL [Suspect]
     Active Substance: METHOCARBAMOL
     Dosage: UNK
  86. METHOCARBAMOL [Suspect]
     Active Substance: METHOCARBAMOL
     Dosage: 1 DOSAGE FORM, BID (1 EVERY 12 HOURS)
  87. MONTELUKAST [Suspect]
     Active Substance: MONTELUKAST
     Indication: Product used for unknown indication
     Dosage: 10 MILLIGRAM, QD (1 EVERY 1 DAYS)
  88. OMEGA 3 [Suspect]
     Active Substance: CAPSAICIN
     Indication: Product used for unknown indication
     Dosage: 400 MILLIGRAM, QD (1 EVERY 1 DAYS)
  89. OMEGA 3 [Suspect]
     Active Substance: CAPSAICIN
     Indication: Product used for unknown indication
     Dosage: 200 MILLIGRAM, QD (1 EVERY 1 DAYS)
  90. OMEGA 3 [Suspect]
     Active Substance: CAPSAICIN
     Dosage: 400 MILLIGRAM, QD (1 EVERY 1 DAYS)
  91. OMEGA 3 [Suspect]
     Active Substance: CAPSAICIN
     Dosage: UNK, QD (1 EVERY 1 DAYS)
  92. OMEGA 3 [Suspect]
     Active Substance: CAPSAICIN
     Dosage: UNK
  93. OMEGA 3 [Suspect]
     Active Substance: CAPSAICIN
     Dosage: 1 DOSAGE FORM, QD (1 EVERY 1 DAYS)
  94. FISH OIL\OMEGA-3 FATTY ACIDS [Suspect]
     Active Substance: FISH OIL\OMEGA-3 FATTY ACIDS
     Indication: Product used for unknown indication
     Dosage: UNK
  95. FISH OIL\OMEGA-3 FATTY ACIDS [Suspect]
     Active Substance: FISH OIL\OMEGA-3 FATTY ACIDS
     Dosage: 200 MILLIGRAM, QD (1 EVERY 1 DAYS)
  96. FISH OIL\OMEGA-3 FATTY ACIDS [Suspect]
     Active Substance: FISH OIL\OMEGA-3 FATTY ACIDS
     Dosage: 400 MILLIGRAM, QD (1 EVERY 1 DAYS)
  97. FISH OIL\OMEGA-3 FATTY ACIDS [Suspect]
     Active Substance: FISH OIL\OMEGA-3 FATTY ACIDS
     Dosage: 200 MILLIGRAM, QD (1 EVERY 1 DAYS)
  98. FISH OIL\OMEGA-3 FATTY ACIDS [Suspect]
     Active Substance: FISH OIL\OMEGA-3 FATTY ACIDS
     Dosage: 400 MILLIGRAM, QD (1 EVERY 1 DAYS)
  99. ROBAXACET [Suspect]
     Active Substance: ACETAMINOPHEN\METHOCARBAMOL
     Indication: Back pain
     Dosage: 900 MILLIGRAM, QD (1 EVERY 1 DAY)
  100. ROBAXACET [Suspect]
     Active Substance: ACETAMINOPHEN\METHOCARBAMOL
     Dosage: 400 MILLIGRAM, QD (1 EVERY 1 DAY)
  101. ROBAXISAL [Suspect]
     Active Substance: ASPIRIN\METHOCARBAMOL
     Indication: Product used for unknown indication
     Dosage: 500 MILLIGRAM, BID (2 EVERY 1 DAY)
  102. ROBAXISAL [Suspect]
     Active Substance: ASPIRIN\METHOCARBAMOL
     Dosage: 400 MILLIGRAM, BID (2 EVERY 1 DAY)
  103. PANTOPRAZOLE [Suspect]
     Active Substance: PANTOPRAZOLE
     Indication: Product used for unknown indication
     Dosage: 40 MILLIGRAM, QD (1 EVERY 1 DAYS)
  104. PHENOBARBITAL [Suspect]
     Active Substance: PHENOBARBITAL
     Indication: Product used for unknown indication
     Dosage: 30 MILLIGRAM, BID (2 EVERY 1 DAY)
  105. PHENOBARBITAL [Suspect]
     Active Substance: PHENOBARBITAL
     Dosage: 30 MILLIGRAM, BID (1 EVERY 12 HOURS)
  106. HIGH DENSITY POLYETHYLENE [Suspect]
     Active Substance: HIGH DENSITY POLYETHYLENE
     Indication: Product used for unknown indication
     Dosage: 30 MILLIGRAM, BID (2 EVERY 1 DAY)
  107. RANITIDINE [Suspect]
     Active Substance: RANITIDINE
     Indication: Product used for unknown indication
     Dosage: 150 MILLIGRAM, QD (1 EVERY 1 DAYS)
  108. ACETAMINOPHEN\METHOCARBAMOL [Suspect]
     Active Substance: ACETAMINOPHEN\METHOCARBAMOL
     Indication: Back pain
     Dosage: 900 MILLIGRAM, QD (1 EVERY 1 DAY)
  109. ACETAMINOPHEN\METHOCARBAMOL [Suspect]
     Active Substance: ACETAMINOPHEN\METHOCARBAMOL
     Dosage: 400 MILLIGRAM, BID (2 EVERY 1 DAY)
  110. ASPIRIN\METHOCARBAMOL [Suspect]
     Active Substance: ASPIRIN\METHOCARBAMOL
     Indication: Product used for unknown indication
     Dosage: 400 MILLIGRAM, BID (2 EVERY 1 DAY)
  111. ALBUTEROL [Suspect]
     Active Substance: ALBUTEROL
     Indication: Product used for unknown indication
     Dosage: 100 MICROGRAM, Q4H (1 EVERY 4 HOURS)
  112. ALBUTEROL [Suspect]
     Active Substance: ALBUTEROL
     Dosage: 100 MILLIGRAM
  113. ALBUTEROL [Suspect]
     Active Substance: ALBUTEROL
     Dosage: 150 MILLIGRAM
  114. ALBUTEROL [Suspect]
     Active Substance: ALBUTEROL
     Dosage: 2 DOSAGE FORM, Q4H (1 EVERY 4 HOURS)
  115. ALBUTEROL [Suspect]
     Active Substance: ALBUTEROL
     Dosage: 100 MILLIGRAM, Q4H (1 EVERY 4 HOURS)
  116. ALBUTEROL [Suspect]
     Active Substance: ALBUTEROL
     Dosage: 600 MILLIGRAM, QD (1 EVERY 1 DAY)
  117. ALBUTEROL [Suspect]
     Active Substance: ALBUTEROL
     Dosage: 2 DOSAGE FORM,
  118. ALBUTEROL [Suspect]
     Active Substance: ALBUTEROL
     Dosage: 150 MILLIGRAM, Q4H (1 EVERY 4 HOURS)
  119. ALBUTEROL [Suspect]
     Active Substance: ALBUTEROL
     Dosage: 1 DOSAGE FORM, Q4H (1 EVERY 4 HOURS)
  120. ALBUTEROL [Suspect]
     Active Substance: ALBUTEROL
     Dosage: UNK
  121. ALBUTEROL [Suspect]
     Active Substance: ALBUTEROL
     Dosage: 100 MICROGRAM, Q4H (1 EVERY 4 HOURS)
  122. LEUPROLIDE ACETATE [Suspect]
     Active Substance: LEUPROLIDE ACETATE
     Indication: Product used for unknown indication
     Dosage: 7.5 MILLIGRAM, MONTHLY (1 EVERY 1 MONTH)
  123. LEUPROLIDE ACETATE [Suspect]
     Active Substance: LEUPROLIDE ACETATE
     Dosage: 7.5 MILLIGRAM, QD (1 EVERY 1 DAY)
  124. RANITIDINE HYDROCHLORIDE [Suspect]
     Active Substance: RANITIDINE HYDROCHLORIDE
     Indication: Product used for unknown indication
     Dosage: 150 MILLIGRAM, QD (1 EVERY 1 DAYS)
  125. ACETAMINOPHEN [Suspect]
     Active Substance: ACETAMINOPHEN
     Indication: Product used for unknown indication
     Dosage: 400 MILLIGRAM, BID (2 EVERY 1 DAY)
  126. HYDROXYCHLOROQUINE SULFATE [Suspect]
     Active Substance: HYDROXYCHLOROQUINE SULFATE
     Indication: Product used for unknown indication
     Dosage: 400 MILLIGRAM, QD (1 EVERY 1 DAYS)
  127. VITAMIN D3 [Suspect]
     Active Substance: CHOLECALCIFEROL
     Indication: Vitamin supplementation
     Dosage: 2000 INTERNATIONAL UNIT, QD (1 EVERY 1 DAY)
  128. VITAMIN D3 [Suspect]
     Active Substance: CHOLECALCIFEROL
     Dosage: UNK, QD (1 EVERY 1 DAYS)
  129. VITAMIN D3 [Suspect]
     Active Substance: CHOLECALCIFEROL
     Dosage: UNK
  130. VITAMIN D3 [Suspect]
     Active Substance: CHOLECALCIFEROL
     Dosage: 200 INTERNATIONAL UNIT, QD (1 EVERY 1 DAY)
  131. VITAMIN D3 [Suspect]
     Active Substance: CHOLECALCIFEROL
     Dosage: UNK
  132. TYLENOL [Suspect]
     Active Substance: ACETAMINOPHEN
     Indication: Back pain
     Dosage: 400 MILLIGRAM, BID (2 EVERY 1 DAY)
  133. FLUTICASONE PROPIONATE [Suspect]
     Active Substance: FLUTICASONE PROPIONATE
     Indication: Product used for unknown indication
     Dosage: 250 MILLIGRAM, QD (1 EVERY 1 DAY)
  134. FLUTICASONE PROPIONATE [Suspect]
     Active Substance: FLUTICASONE PROPIONATE
     Dosage: 2 DOSAGE FORM, QD (1 EVERY 1 DAY)
  135. HYDROMORPHONE [Suspect]
     Active Substance: HYDROMORPHONE
     Indication: Pain management
     Dosage: UNK
  136. HYDROMORPHONE [Suspect]
     Active Substance: HYDROMORPHONE
     Indication: Back pain
  137. ACETAMINOPHEN [Suspect]
     Active Substance: ACETAMINOPHEN
     Indication: Product used for unknown indication
     Dosage: UNK, BID (2 EVERY 1 DAYS)
  138. MONTELUKAST SODIUM [Suspect]
     Active Substance: MONTELUKAST SODIUM
     Indication: Product used for unknown indication
     Dosage: 10 MILLIGRAM, QD (1 EVERY 1 DAYS)
  139. ARIPIPRAZOLE [Suspect]
     Active Substance: ARIPIPRAZOLE
     Indication: Schizophrenia
     Dosage: 2 MILLIGRAM, TID (3 EVERY 1 DAY)
  140. ARIPIPRAZOLE [Suspect]
     Active Substance: ARIPIPRAZOLE
     Dosage: 5 MILLIGRAM, QD (1 EVERY 1 DAY)
  141. VITAMIN D3 [Suspect]
     Active Substance: CHOLECALCIFEROL
     Indication: Vitamin supplementation
     Dosage: UNK, QD (1 EVERY 1 DAYS)
  142. VITAMIN D3 [Suspect]
     Active Substance: CHOLECALCIFEROL
     Dosage: 200 INTERNATIONAL UNIT, QD (1 EVERY 1 DAYS)
  143. ARIPIPRAZOLE [Suspect]
     Active Substance: ARIPIPRAZOLE
     Indication: Schizophrenia
     Dosage: 2 MILLIGRAM, Q8H (1 EVERY 8 HOUR)
  144. ARIPIPRAZOLE [Suspect]
     Active Substance: ARIPIPRAZOLE
     Dosage: 2 MILLIGRAM, QD (1 EVERY 1 DAYS)
  145. ARIPIPRAZOLE [Suspect]
     Active Substance: ARIPIPRAZOLE
     Dosage: 5 MILLIGRAM, QD (1 EVERY 1 DAYS)
  146. TYLENOL EXTRA STRENGTH [Suspect]
     Active Substance: ACETAMINOPHEN
     Indication: Back pain
     Dosage: 400 MILLIGRAM, BID (1 EVERY 12 HOURS)
  147. MONTELUKAST SODIUM [Suspect]
     Active Substance: MONTELUKAST SODIUM
     Indication: Product used for unknown indication
     Dosage: 10 MILLIGRAM, QD (1 EVERY 1 DAYS)
  148. POLYETHYLENE GLYCOL\POTASSIUM CHLORIDE\SODIUM BICARBONATE [Concomitant]
     Active Substance: POLYETHYLENE GLYCOL\POTASSIUM CHLORIDE\SODIUM BICARBONATE
     Indication: Product used for unknown indication
     Dosage: UNK
  149. POLYETHYLENE GLYCOL 3350\POTASSIUM CHLORIDE\SODIUM BICARBONATE\SODIUM [Concomitant]
     Active Substance: POLYETHYLENE GLYCOL 3350\POTASSIUM CHLORIDE\SODIUM BICARBONATE\SODIUM CHLORIDE
     Indication: Product used for unknown indication
     Dosage: UNK

REACTIONS (16)
  - Drug dependence [Recovered/Resolved]
  - Epidural lipomatosis [Recovered/Resolved]
  - Juvenile idiopathic arthritis [Recovered/Resolved]
  - Obesity [Recovered/Resolved]
  - Tenderness [Recovered/Resolved]
  - Respiratory depression [Recovered/Resolved]
  - Drug abuse [Recovered/Resolved]
  - Child abuse [Recovered/Resolved]
  - Drug ineffective [Recovered/Resolved]
  - Intentional product misuse [Recovered/Resolved]
  - Product prescribing error [Recovered/Resolved]
  - Product use in unapproved indication [Recovered/Resolved]
  - Product use issue [Recovered/Resolved]
  - Inappropriate schedule of product administration [Recovered/Resolved]
  - Off label use [Recovered/Resolved]
  - Victim of child abuse [Recovered/Resolved]
